FAERS Safety Report 25813727 (Version 5)
Quarter: 2025Q4

REPORT INFORMATION
  Report Type: Report from Study
  Country: EU (occurrence: EU)
  Receive Date: 20250917
  Receipt Date: 20251218
  Transmission Date: 20260118
  Serious: Yes (Hospitalization)
  Sender: ABBVIE
  Company Number: EU-ABBVIE-6461407

PATIENT
  Age: 83 Year
  Sex: Male

DRUGS (2)
  1. CARBIDOPA\LEVODOPA [Suspect]
     Active Substance: CARBIDOPA\LEVODOPA
     Indication: Parkinson^s disease
     Dosage: MD 8.0 ML; CR DAY-TIME 2.4 ML/H; ED 1.5 ML 6H BLOCKING PERIOD
     Route: 050
     Dates: start: 20160628
  2. CARBIDOPA\LEVODOPA [Suspect]
     Active Substance: CARBIDOPA\LEVODOPA
     Dosage: MD 8.0 ML; CR DAY-TIME 2.4 ML/H; ED 1.5 ML 3H BLOCKING TIME
     Route: 050

REACTIONS (4)
  - General physical health deterioration [Recovering/Resolving]
  - Decreased appetite [Not Recovered/Not Resolved]
  - Device issue [Unknown]
  - Incorrect route of product administration [Recovered/Resolved]
